FAERS Safety Report 25461159 (Version 5)
Quarter: 2025Q3

REPORT INFORMATION
  Report Type: Report from Study
  Country: US (occurrence: US)
  Receive Date: 20250620
  Receipt Date: 20250912
  Transmission Date: 20251020
  Serious: Yes (Other)
  Sender: MALLINCKRODT
  Company Number: US-MALLINCKRODT-MNK202503561

PATIENT
  Age: 80 Year
  Sex: Male
  Weight: 135 kg

DRUGS (1)
  1. CORTICOTROPIN [Suspect]
     Active Substance: CORTICOTROPIN
     Indication: Proteinuria
     Route: 058
     Dates: start: 20250523

REACTIONS (3)
  - Blood glucose increased [Unknown]
  - Pollakiuria [Unknown]
  - Urinary incontinence [Unknown]
